FAERS Safety Report 8812305 (Version 2)
Quarter: 2015Q2

REPORT INFORMATION
  Report Type: Report from Study
  Country: US (occurrence: US)
  Receive Date: 20120927
  Receipt Date: 20150622
  Transmission Date: 20150821
  Serious: Yes (Death)
  Sender: FDA-Public Use
  Company Number: US-ROCHE-1097814

PATIENT
  Sex: Male

DRUGS (9)
  1. AVASTIN [Suspect]
     Active Substance: BEVACIZUMAB
     Route: 065
  2. OXYCONTIN [Concomitant]
     Active Substance: OXYCODONE HYDROCHLORIDE
     Route: 065
  3. NORVASC [Concomitant]
     Active Substance: AMLODIPINE BESYLATE
     Route: 065
  4. SENOKOT [Concomitant]
     Active Substance: SENNOSIDES
  5. AVASTIN [Suspect]
     Active Substance: BEVACIZUMAB
     Indication: RENAL CANCER
     Route: 065
     Dates: start: 200405
  6. XELODA [Suspect]
     Active Substance: CAPECITABINE
     Indication: PRODUCT USED FOR UNKNOWN INDICATION
     Route: 065
  7. IRESSA [Concomitant]
     Active Substance: GEFITINIB
     Route: 065
  8. OXY IR [Concomitant]
     Active Substance: OXYCODONE HYDROCHLORIDE
     Route: 065
  9. AVASTIN [Suspect]
     Active Substance: BEVACIZUMAB
     Route: 065

REACTIONS (7)
  - Death [Fatal]
  - Disease progression [Unknown]
  - Pain [Unknown]
  - Off label use [Unknown]
  - Proteinuria [Unknown]
  - Hypertension [Unknown]
  - Renal failure [Unknown]
